FAERS Safety Report 20429911 (Version 1)
Quarter: 2022Q1

REPORT INFORMATION
  Report Type: Report from Study
  Country: US (occurrence: US)
  Receive Date: 20220204
  Receipt Date: 20220204
  Transmission Date: 20220423
  Serious: Yes (Life-Threatening, Hospitalization)
  Sender: FDA-Public Use
  Company Number: US-SERVIER-S19000060

PATIENT

DRUGS (17)
  1. ONCASPAR [Suspect]
     Active Substance: PEGASPARGASE
     Indication: B precursor type acute leukaemia
     Dosage: 2500 IU/M2, EVERY 2 WEEKS
     Route: 042
     Dates: start: 20180328, end: 20181128
  2. ONCASPAR [Suspect]
     Active Substance: PEGASPARGASE
     Dosage: 2500 IU/M2, EVERY 2 WEEKS
     Route: 042
     Dates: end: 20190102
  3. DEXRAZOXANE [Suspect]
     Active Substance: DEXRAZOXANE
     Indication: B precursor type acute leukaemia
     Dosage: 300 MG/M2, EVERY 3 WEEKS
     Route: 042
     Dates: start: 20180402, end: 20181205
  4. DEXRAZOXANE [Suspect]
     Active Substance: DEXRAZOXANE
     Dosage: 300 MG/M2, EVERY 3 WEEKS
     Route: 042
     Dates: start: 20181228
  5. DOXORUBICIN HYDROCHLORIDE [Suspect]
     Active Substance: DOXORUBICIN HYDROCHLORIDE
     Indication: B precursor type acute leukaemia
     Dosage: 30 MG/M2, EVERY 3 WEEKS
     Route: 042
     Dates: start: 20180402, end: 20181205
  6. DOXORUBICIN HYDROCHLORIDE [Suspect]
     Active Substance: DOXORUBICIN HYDROCHLORIDE
     Dosage: 30 MG/M2, EVERY 3 WEEKS
     Route: 042
     Dates: start: 20181228
  7. MERCAPTOPURINE [Suspect]
     Active Substance: MERCAPTOPURINE
     Indication: B precursor type acute leukaemia
     Dosage: 50 MG/M2, DAY 1-14 OF EACH 3-WEEK CYCLE
     Route: 048
     Dates: start: 20180501, end: 20181211
  8. MERCAPTOPURINE [Suspect]
     Active Substance: MERCAPTOPURINE
     Dosage: 50 MG/M2, DAY 1-14 OF EACH 3-WEEK CYCLE
     Route: 048
     Dates: start: 20181228, end: 20190108
  9. DEXAMETHASONE SODIUM SUCCINATE [Suspect]
     Active Substance: DEXAMETHASONE SODIUM SUCCINATE
     Indication: B precursor type acute leukaemia
     Dosage: 18 MG/M2, OTHER
     Route: 048
     Dates: start: 20180323, end: 20181210
  10. DEXAMETHASONE SODIUM SUCCINATE [Suspect]
     Active Substance: DEXAMETHASONE SODIUM SUCCINATE
     Dosage: 18 MG/M2, OTHER
     Route: 048
     Dates: start: 20181228
  11. VINCRISTINE SULFATE [Suspect]
     Active Substance: VINCRISTINE SULFATE
     Indication: B precursor type acute leukaemia
     Dosage: 2 MG/M2, EVERY 3 WEEKS
     Route: 042
     Dates: start: 20180326, end: 20181205
  12. VINCRISTINE SULFATE [Suspect]
     Active Substance: VINCRISTINE SULFATE
     Dosage: 2 MG/M2, EVERY 3 WEEKS
     Route: 042
     Dates: start: 20181228
  13. ACETAMINOPHEN [Concomitant]
     Active Substance: ACETAMINOPHEN
     Indication: Product used for unknown indication
     Dosage: UNK
     Route: 065
  14. TN UNSPECIFIED [Concomitant]
     Indication: Product used for unknown indication
     Dosage: UNK
     Route: 065
  15. VITAMIN K [Concomitant]
     Active Substance: PHYTONADIONE
     Indication: Product used for unknown indication
     Dosage: UNK
     Route: 065
  16. TN UNSPECIFIED [Concomitant]
     Indication: Product used for unknown indication
     Dosage: UNK
     Route: 065
  17. TN UNSPECIFIED [Concomitant]
     Indication: Product used for unknown indication
     Dosage: UNK
     Route: 065

REACTIONS (3)
  - Sepsis [Recovered/Resolved]
  - Device related infection [Recovered/Resolved]
  - Escherichia bacteraemia [Unknown]

NARRATIVE: CASE EVENT DATE: 20181212
